FAERS Safety Report 5979892-0 (Version None)
Quarter: 2008Q4

REPORT INFORMATION
  Report Type: 
  Country: None (occurrence: None)
  Receive Date: 20081205
  Receipt Date: 20081127
  Transmission Date: 20090506
  Serious: Yes (Death, Life-Threatening, Other)
  Sender: FDA-Public Use
  Company Number: FR-JNJFOC-20070605125

PATIENT
  Sex: Male
  Weight: 65 kg

DRUGS (5)
  1. INFLIXIMAB [Suspect]
     Route: 042
  2. INFLIXIMAB [Suspect]
     Indication: PSORIASIS
     Route: 042
  3. DOGMATIL [Concomitant]
     Indication: DEPRESSION
     Route: 048
  4. STABLON [Concomitant]
     Indication: DEPRESSION
     Route: 048
  5. QUIEBLINE [Concomitant]
     Indication: DEPRESSION
     Route: 048

REACTIONS (1)
  - SMALL CELL LUNG CANCER METASTATIC [None]
